FAERS Safety Report 16495770 (Version 1)
Quarter: 2019Q2

REPORT INFORMATION
  Report Type: Spontaneous
  Country: MX (occurrence: MX)
  Receive Date: 20190628
  Receipt Date: 20190628
  Transmission Date: 20190711
  Serious: Yes (Hospitalization)
  Sender: FDA-Public Use
  Company Number: MX-ANIPHARMA-2019-MX-000024

PATIENT
  Age: 57 Year
  Sex: Male
  Weight: 91 kg

DRUGS (4)
  1. ATACAND [Suspect]
     Active Substance: CANDESARTAN CILEXETIL
     Dosage: 32 MG QD
     Route: 048
     Dates: start: 2004, end: 2018
  2. CRESTOR [Suspect]
     Active Substance: ROSUVASTATIN CALCIUM
     Dosage: 20 MG QD
     Route: 048
     Dates: start: 2004
  3. CANDESARTAN CILEXETIL AND HYDROCHLOROTHIAZIDE [Suspect]
     Active Substance: CANDESARTAN CILEXETIL\HYDROCHLOROTHIAZIDE
     Indication: HYPERTENSION
     Dosage: 16 / 12.5MG 1 TAB EVERY 24 HRS / 16 / 9.5MG 1 TAB EVERY 24 HRS
     Route: 048
     Dates: start: 2009
  4. NORVASC [Concomitant]
     Active Substance: AMLODIPINE BESYLATE
     Dosage: 1 DF DAILY
     Route: 048
     Dates: start: 2009

REACTIONS (4)
  - Blood pressure abnormal [Recovered/Resolved]
  - Somnolence [Recovered/Resolved]
  - Myocardial infarction [Recovered/Resolved]
  - Asthenia [Recovered/Resolved]

NARRATIVE: CASE EVENT DATE: 2004
